FAERS Safety Report 4534984-8 (Version None)
Quarter: 2004Q4

REPORT INFORMATION
  Report Type: 
  Country: None (occurrence: None)
  Receive Date: 20041222
  Receipt Date: 20041026
  Transmission Date: 20050328
  Serious: No
  Sender: FDA-Public Use
  Company Number: US-BRISTOL-MYERS SQUIBB COMPANY-12745261

PATIENT
  Age: 83 Year
  Sex: Male
  Weight: 84 kg

DRUGS (5)
  1. PRAVACHOL [Suspect]
     Indication: BLOOD CHOLESTEROL INCREASED
     Route: 048
     Dates: start: 20041018
  2. COUMADIN [Concomitant]
  3. LANOXIN [Concomitant]
  4. ALLOPURINOL [Concomitant]
  5. LEVOTHYROID [Concomitant]

REACTIONS (2)
  - DIZZINESS [None]
  - STOMACH DISCOMFORT [None]
